FAERS Safety Report 4999741-7 (Version None)
Quarter: 2006Q2

REPORT INFORMATION
  Report Type: 
  Country: None (occurrence: None)
  Receive Date: 20060511
  Receipt Date: 20060123
  Transmission Date: 20061013
  Serious: Yes (Other)
  Sender: FDA-Public Use
  Company Number: JP-JPN-A200600297

PATIENT
  Age: 1 Year
  Sex: Male
  Weight: 11 kg

DRUGS (6)
  1. AUGMENTIN '125' [Suspect]
     Indication: OTITIS MEDIA ACUTE
     Dosage: .8G TWICE PER DAY
     Route: 048
     Dates: start: 20060120, end: 20060123
  2. TAMIFLU [Suspect]
     Indication: INFLUENZA
     Dosage: .75G TWICE PER DAY
     Route: 048
     Dates: start: 20060121, end: 20060123
  3. ANTIBIOPHILUS [Concomitant]
     Dosage: 1G THREE TIMES PER DAY
     Route: 048
     Dates: start: 20060120
  4. MEDICON [Concomitant]
     Indication: COUGH
     Dosage: 6ML THREE TIMES PER DAY
     Route: 048
     Dates: start: 20060121
  5. POLARAMINE [Concomitant]
     Dosage: 4ML THREE TIMES PER DAY
     Route: 048
     Dates: start: 20060121
  6. MUCODYNE [Concomitant]
     Indication: COUGH
     Dosage: 24ML PER DAY
     Route: 048
     Dates: start: 20060121

REACTIONS (1)
  - MELAENA [None]
